FAERS Safety Report 12093051 (Version 3)
Quarter: 2018Q2

REPORT INFORMATION
  Report Type: Spontaneous
  Country: US (occurrence: US)
  Receive Date: 20160219
  Receipt Date: 20180508
  Transmission Date: 20180711
  Serious: Yes (Hospitalization)
  Sender: FDA-Public Use
  Company Number: US-PFIZER INC-2016053435

PATIENT
  Age: 55 Year
  Sex: Female
  Weight: 73.16 kg

DRUGS (2)
  1. PREMPRO [Suspect]
     Active Substance: ESTROGENS, CONJUGATED\MEDROXYPROGESTERONE ACETATE
     Indication: OOPHORECTOMY
     Dosage: 1 DF, DAILY; [ESTROGENS CONJUGATED 0.45 MG, MEDROXYPROGESTERONE ACETATE 1.5 MG]
     Route: 048
     Dates: start: 2015, end: 201803
  2. PREMPRO [Suspect]
     Active Substance: ESTROGENS, CONJUGATED\MEDROXYPROGESTERONE ACETATE
     Dosage: UNK

REACTIONS (2)
  - Condition aggravated [Unknown]
  - Depression [Unknown]
